FAERS Safety Report 21586662 (Version 1)
Quarter: 2022Q4

REPORT INFORMATION
  Report Type: Spontaneous
  Country: US (occurrence: US)
  Receive Date: 20221113
  Receipt Date: 20221113
  Transmission Date: 20230113
  Serious: Yes (Death, Life-Threatening, Other)
  Sender: FDA-Public Use
  Company Number: US-drreddys-LIT/USA/22/0157124

PATIENT
  Sex: Male

DRUGS (8)
  1. TACROLIMUS [Suspect]
     Active Substance: TACROLIMUS
     Indication: Immunosuppressant drug therapy
  2. TERBINAFINE [Suspect]
     Active Substance: TERBINAFINE
     Indication: Candida infection
  3. AMPHOTERICIN B [Suspect]
     Active Substance: AMPHOTERICIN B
     Indication: Candida infection
  4. FLUCYTOSINE [Suspect]
     Active Substance: FLUCYTOSINE
     Indication: Candida infection
  5. IBREXAFUNGERP [Suspect]
     Active Substance: IBREXAFUNGERP
     Indication: Candida infection
  6. ISAVUCONAZOLE [Suspect]
     Active Substance: ISAVUCONAZOLE
     Indication: Candida infection
  7. MICAFUNGIN [Suspect]
     Active Substance: MICAFUNGIN
     Indication: Candida infection
  8. VORICONAZOLE [Suspect]
     Active Substance: VORICONAZOLE
     Indication: Candida infection

REACTIONS (5)
  - Candida infection [Fatal]
  - Drug ineffective for unapproved indication [Unknown]
  - Fungaemia [Unknown]
  - Perihepatic abscess [Unknown]
  - Renal abscess [Unknown]
